FAERS Safety Report 5873982-9 (Version None)
Quarter: 2008Q3

REPORT INFORMATION
  Report Type: 
  Country: None (occurrence: None)
  Receive Date: 20080908
  Receipt Date: 20080828
  Transmission Date: 20090109
  Serious: Yes (Hospitalization)
  Sender: FDA-Public Use
  Company Number: SG-MERCK-0808SGP00005

PATIENT
  Age: 70 Year
  Sex: Female

DRUGS (3)
  1. JANUVIA [Suspect]
     Indication: DIABETES MELLITUS
     Route: 048
     Dates: start: 20080101, end: 20080801
  2. [THERAPY UNSPECIFIED] [Concomitant]
     Route: 065
  3. ALLOPURINOL [Suspect]
     Route: 048
     Dates: start: 20080101, end: 20080801

REACTIONS (3)
  - HEADACHE [None]
  - PYREXIA [None]
  - RASH GENERALISED [None]
